FAERS Safety Report 10052565 (Version 2)
Quarter: 2014Q2

REPORT INFORMATION
  Report Type: Spontaneous
  Country: US (occurrence: None)
  Receive Date: 20140331
  Receipt Date: 20140630
  Transmission Date: 20141212
  Serious: Yes (Other)
  Sender: FDA-Public Use
  Company Number: 2014P1002353

PATIENT
  Age: 74 Year
  Sex: Female
  Weight: 69.85 kg

DRUGS (3)
  1. TROKENDI XR [Suspect]
     Indication: BACK PAIN
     Route: 048
     Dates: start: 20140310, end: 20140313
  2. NEXIUM [Concomitant]
  3. CRESTOR [Concomitant]

REACTIONS (11)
  - Headache [None]
  - Confusional state [None]
  - Amnesia [None]
  - Depression [None]
  - Vision blurred [None]
  - Pain in extremity [None]
  - Pain in extremity [None]
  - Muscular weakness [None]
  - Visual impairment [None]
  - Diplopia [None]
  - Off label use [None]
